FAERS Safety Report 23242487 (Version 3)
Quarter: 2023Q4

REPORT INFORMATION
  Report Type: Report from Study
  Country: US (occurrence: US)
  Receive Date: 20231129
  Receipt Date: 20231208
  Transmission Date: 20240105
  Serious: Yes (Hospitalization)
  Sender: FDA-Public Use
  Company Number: US-PFIZER INC-PV202300193729

PATIENT
  Age: 55 Year
  Sex: Female
  Weight: 68 kg

DRUGS (3)
  1. XALKORI [Suspect]
     Active Substance: CRIZOTINIB
     Indication: Uveal melanoma
     Dosage: UNK
     Route: 065
  2. DAROVASERTIB [Suspect]
     Active Substance: DAROVASERTIB
     Indication: Uveal melanoma
     Dosage: 300 MILLIGRAM, BID
     Route: 048
     Dates: start: 20230824
  3. DAROVASERTIB [Suspect]
     Active Substance: DAROVASERTIB
     Dosage: REDUCED
     Dates: start: 20231003

REACTIONS (1)
  - Hypotension [Recovered/Resolved]

NARRATIVE: CASE EVENT DATE: 20231023
